FAERS Safety Report 13538506 (Version 1)
Quarter: 2017Q2

REPORT INFORMATION
  Report Type: Report from Study
  Country: None (occurrence: US)
  Receive Date: 20170512
  Receipt Date: 20170512
  Transmission Date: 20170830
  Serious: Yes (Death, Hospitalization, Other)
  Sender: FDA-Public Use
  Company Number: US-ABBVIE-17K-163-1971643-00

PATIENT
  Age: 83 Year
  Sex: Male

DRUGS (1)
  1. HUMIRA [Suspect]
     Active Substance: ADALIMUMAB
     Indication: RHEUMATOID ARTHRITIS
     Route: 058

REACTIONS (7)
  - Medical induction of coma [Unknown]
  - Death [Fatal]
  - Heart valve replacement [Unknown]
  - Cardiac pacemaker insertion [Unknown]
  - Rheumatoid arthritis [Unknown]
  - Coronary arterial stent insertion [Unknown]
  - Fall [Not Recovered/Not Resolved]

NARRATIVE: CASE EVENT DATE: 201612
